FAERS Safety Report 5493187-3 (Version None)
Quarter: 2007Q4

REPORT INFORMATION
  Report Type: 
  Country: None (occurrence: None)
  Receive Date: 20071023
  Receipt Date: 20071018
  Transmission Date: 20080405
  Serious: Yes (Other)
  Sender: FDA-Public Use
  Company Number: A0688494A

PATIENT
  Age: 29 Year
  Sex: Male

DRUGS (3)
  1. LAMICTAL [Suspect]
     Indication: MAJOR DEPRESSION
     Dosage: 300MG PER DAY
     Route: 048
     Dates: start: 20060101
  2. THERAFLU [Suspect]
  3. TYLENOL COLD NIGHT TIME [Suspect]
     Route: 048

REACTIONS (9)
  - ADVERSE DRUG REACTION [None]
  - DRUG INTERACTION [None]
  - EUPHORIC MOOD [None]
  - HALLUCINATION [None]
  - HYPERACUSIS [None]
  - HYPERVIGILANCE [None]
  - HYPOMANIA [None]
  - IRRITABILITY [None]
  - LIBIDO INCREASED [None]
